FAERS Safety Report 7659881-0 (Version None)
Quarter: 2011Q3

REPORT INFORMATION
  Report Type: 
  Country: None (occurrence: None)
  Receive Date: 20110805
  Receipt Date: 20110726
  Transmission Date: 20111222
  Serious: Yes (Other)
  Sender: FDA-Public Use
  Company Number: GB-JNJFOC-20110801050

PATIENT
  Sex: Female

DRUGS (4)
  1. NICORETTE [Suspect]
     Route: 062
  2. NICORETTE [Suspect]
     Route: 062
  3. NICORETTE [Suspect]
     Indication: PRODUCT USED FOR UNKNOWN INDICATION
     Route: 062
  4. NICORETTE [Suspect]
     Indication: PRODUCT USED FOR UNKNOWN INDICATION
     Route: 062

REACTIONS (4)
  - THERMAL BURN [None]
  - PRURITUS [None]
  - APPLICATION SITE VESICLES [None]
  - ERYTHEMA [None]
